FAERS Safety Report 16539702 (Version 1)
Quarter: 2019Q3

REPORT INFORMATION
  Report Type: Spontaneous
  Country: US (occurrence: US)
  Receive Date: 20190524
  Receipt Date: 20190524
  Transmission Date: 20191004
  Serious: Yes (Hospitalization)
  Sender: FDA-Public Use
  Company Number: None

PATIENT
  Age: 15 Year
  Sex: Male

DRUGS (22)
  1. FLUTICASONE SPR [Concomitant]
  2. OMEGA -3 [Concomitant]
  3. CALCIUM D TBA [Concomitant]
  4. OMPERAZOLE CAP [Concomitant]
  5. VENTOLIN HGA AER [Concomitant]
  6. HYPER-SAL NEB [Concomitant]
  7. DEXMSTHYLPH TAB [Concomitant]
  8. MAGNESIUM TAB [Concomitant]
  9. URSODIOL CAP [Concomitant]
  10. HYDROXYZ HCL TAB [Concomitant]
  11. FLOVENT HFA AER [Concomitant]
  12. GAMUNEX- C INJ [Concomitant]
  13. OMEGA 3 CAP [Concomitant]
  14. ORKAMBI [Concomitant]
     Active Substance: IVACAFTOR\LUMACAFTOR
  15. HYDROXYZ HCL TAB [Concomitant]
  16. ORKAMBI [Concomitant]
     Active Substance: IVACAFTOR\LUMACAFTOR
  17. SMZ/TMP DS TAB [Concomitant]
  18. VYVANSE CAP [Concomitant]
  19. PULMOZYME [Suspect]
     Active Substance: DORNASE ALFA
     Indication: CYSTIC FIBROSIS
     Dosage: ?          OTHER DOSE:2.5MG;OTHER ROUTE:NEBULIZER?
  20. KITABIS PAK [Concomitant]
     Active Substance: TOBRAMYCIN
  21. MILK-VITAMIN TAB [Concomitant]
  22. PULMOZYME SOL [Concomitant]

REACTIONS (1)
  - Hospitalisation [None]

NARRATIVE: CASE EVENT DATE: 20190524
